FAERS Safety Report 6748185-6 (Version None)
Quarter: 2010Q2

REPORT INFORMATION
  Report Type: 
  Country: None (occurrence: None)
  Receive Date: 20100531
  Receipt Date: 20100524
  Transmission Date: 20101027
  Serious: Yes (Death, Hospitalization)
  Sender: FDA-Public Use
  Company Number: PHHY2010US33628

PATIENT
  Sex: Female

DRUGS (3)
  1. EXJADE [Suspect]
     Indication: CHRONIC LEUKAEMIA
     Dosage: 1500 MG, QD
     Route: 048
     Dates: start: 20090225
  2. GLEEVEC [Suspect]
     Indication: CHRONIC MYELOID LEUKAEMIA
  3. COUMADIN [Concomitant]
     Indication: ATRIAL FIBRILLATION

REACTIONS (5)
  - CARDIAC FAILURE CONGESTIVE [None]
  - MALIGNANT NEOPLASM PROGRESSION [None]
  - RENAL FAILURE [None]
  - SEPSIS [None]
  - URINARY TRACT INFECTION [None]
